FAERS Safety Report 4603033-5 (Version None)
Quarter: 2005Q1

REPORT INFORMATION
  Report Type: 
  Country: None (occurrence: None)
  Receive Date: 20050307
  Receipt Date: 20050224
  Transmission Date: 20050727
  Serious: Yes (Death)
  Sender: FDA-Public Use
  Company Number: 2005036571

PATIENT
  Age: 38 Year
  Sex: Male

DRUGS (1)
  1. TAHOR (ATORVASTATIN) [Suspect]
     Indication: HYPERCHOLESTEROLAEMIA
     Dosage: 10 MG (10 MG, 1 IN 1 D)
     Dates: start: 20040901, end: 20050201

REACTIONS (3)
  - HEPATIC FAILURE [None]
  - HYPERTHERMIA [None]
  - LOSS OF CONSCIOUSNESS [None]
